FAERS Safety Report 11048558 (Version 1)
Quarter: 2015Q2

REPORT INFORMATION
  Report Type: Spontaneous
  Country: TR (occurrence: TR)
  Receive Date: 20150420
  Receipt Date: 20150420
  Transmission Date: 20150821
  Serious: Yes (Hospitalization)
  Sender: FDA-Public Use
  Company Number: PHHY2015TR043202

PATIENT
  Age: 14 Year
  Sex: Female

DRUGS (3)
  1. SERTRALINE [Suspect]
     Active Substance: SERTRALINE HYDROCHLORIDE
     Indication: DEPRESSION
     Dosage: 150 MG, QD
     Route: 065
  2. METHYLPHENIDATE HYDROCHLORIDE. [Suspect]
     Active Substance: METHYLPHENIDATE HYDROCHLORIDE
     Indication: DISTURBANCE IN ATTENTION
     Dosage: 18 MG, QD
     Route: 065
  3. METHYLPHENIDATE HYDROCHLORIDE. [Suspect]
     Active Substance: METHYLPHENIDATE HYDROCHLORIDE
     Indication: MEMORY IMPAIRMENT

REACTIONS (22)
  - Headache [Recovered/Resolved]
  - Loss of consciousness [Recovered/Resolved]
  - Myoclonus [Recovered/Resolved]
  - Flushing [Recovered/Resolved]
  - Dyskinesia [Recovered/Resolved]
  - Agitation [Recovered/Resolved]
  - Abnormal behaviour [Recovered/Resolved]
  - Hyperreflexia [Recovered/Resolved]
  - Disorientation [Recovered/Resolved]
  - Chills [Recovered/Resolved]
  - Hallucination, auditory [Recovered/Resolved]
  - Muscle rigidity [Recovered/Resolved]
  - Pyrexia [Recovered/Resolved]
  - Tachypnoea [Recovered/Resolved]
  - Hallucination, visual [Recovered/Resolved]
  - Tremor [Recovered/Resolved]
  - Hyperhidrosis [Recovered/Resolved]
  - Diarrhoea [Recovered/Resolved]
  - Serotonin syndrome [Recovered/Resolved]
  - Confusional state [Recovered/Resolved]
  - Vomiting [Recovered/Resolved]
  - Hypersensitivity [Recovered/Resolved]
